FAERS Safety Report 9320285 (Version 2)
Quarter: 2013Q2

REPORT INFORMATION
  Report Type: Spontaneous
  Country: US (occurrence: US)
  Receive Date: 20130530
  Receipt Date: 20130612
  Transmission Date: 20140414
  Serious: Yes (Other)
  Sender: FDA-Public Use
  Company Number: CHPA2013US009140

PATIENT
  Age: 81 Year
  Sex: Female

DRUGS (3)
  1. VOLTAREN GEL [Suspect]
     Indication: JOINT DISLOCATION
     Dosage: LESS THAN 2 GRAMS, UNK
     Route: 061
     Dates: start: 20130521, end: 20130521
  2. HYDRALAZINE [Concomitant]
     Dosage: 75 MG, QD
  3. LISINOPRIL HCTZ [Concomitant]
     Dosage: 20/12.5 MG, BID

REACTIONS (6)
  - Blindness [Recovering/Resolving]
  - Transient ischaemic attack [Unknown]
  - Visual impairment [Recovering/Resolving]
  - Somnolence [Recovered/Resolved]
  - Off label use [Unknown]
  - Drug administered at inappropriate site [Unknown]
